FAERS Safety Report 5355833-4 (Version None)
Quarter: 2007Q2

REPORT INFORMATION
  Report Type: 
  Country: None (occurrence: None)
  Receive Date: 20070530
  Receipt Date: 20070305
  Transmission Date: 20071010
  Serious: Yes (Other)
  Sender: FDA-Public Use
  Company Number: US200703000855

PATIENT
  Sex: Female
  Weight: 94.8 kg

DRUGS (2)
  1. ZYPREXA [Suspect]
     Indication: SCHIZOPHRENIA
     Dosage: 20 MG, DAILY (1/D), UNK
     Dates: start: 20060730
  2. ABILIFY [Concomitant]

REACTIONS (1)
  - WEIGHT INCREASED [None]
